FAERS Safety Report 14372643 (Version 3)
Quarter: 2019Q1

REPORT INFORMATION
  Report Type: Report from Study
  Country: US (occurrence: US)
  Receive Date: 20180110
  Receipt Date: 20190204
  Transmission Date: 20190417
  Serious: Yes (Other)
  Sender: FDA-Public Use
  Company Number: US-JNJFOC-20171112731

PATIENT
  Age: 70 Year
  Sex: Female

DRUGS (6)
  1. IMBRUVICA [Suspect]
     Active Substance: IBRUTINIB
     Indication: CHRONIC LYMPHOCYTIC LEUKAEMIA
     Route: 048
     Dates: start: 20171030
  2. VALACYCLOVIR [Concomitant]
     Active Substance: VALACYCLOVIR HYDROCHLORIDE
  3. IMBRUVICA [Suspect]
     Active Substance: IBRUTINIB
     Indication: CHRONIC LYMPHOCYTIC LEUKAEMIA
     Route: 048
     Dates: start: 20180919
  4. NAPROXEN. [Concomitant]
     Active Substance: NAPROXEN
  5. LIVALO [Concomitant]
     Active Substance: PITAVASTATIN CALCIUM
  6. SYNTHROID [Concomitant]
     Active Substance: LEVOTHYROXINE SODIUM

REACTIONS (9)
  - Arthralgia [Not Recovered/Not Resolved]
  - Back pain [Unknown]
  - Eye haemorrhage [Recovered/Resolved]
  - Incorrect dose administered [Unknown]
  - Joint swelling [Recovered/Resolved]
  - Off label use [Unknown]
  - Visual impairment [Recovering/Resolving]
  - Myalgia [Recovering/Resolving]
  - Rash papular [Unknown]

NARRATIVE: CASE EVENT DATE: 20171108
